FAERS Safety Report 9850469 (Version 1)
Quarter: 2014Q1

REPORT INFORMATION
  Report Type: Spontaneous
  Country: US (occurrence: US)
  Receive Date: 20140128
  Receipt Date: 20140128
  Transmission Date: 20141002
  Serious: Yes (Other)
  Sender: FDA-Public Use
  Company Number: US-JNJFOC-20140112402

PATIENT
  Age: 67 Year
  Sex: Male
  Weight: 66.68 kg

DRUGS (12)
  1. REMICADE [Suspect]
     Indication: COLITIS ULCERATIVE
     Route: 042
     Dates: start: 200703
  2. REMICADE [Suspect]
     Indication: COLITIS ULCERATIVE
     Dosage: WOULD BE EXACTLY 5MG/KG
     Route: 042
     Dates: start: 2013
  3. REMICADE [Suspect]
     Indication: COLITIS ULCERATIVE
     Dosage: EXACTLY 5MG/KG
     Route: 042
     Dates: start: 2007
  4. LORAZEPAM [Suspect]
     Indication: ANXIETY
     Route: 048
  5. BUDESONIDE [Concomitant]
     Indication: COLITIS ULCERATIVE
     Route: 048
  6. AZATHIOPRINE [Concomitant]
     Indication: COLITIS ULCERATIVE
     Dosage: 200MG/50 MG
     Route: 048
  7. MESALAMINE [Concomitant]
     Indication: COLITIS ULCERATIVE
     Route: 048
  8. SERTRALINE [Concomitant]
     Indication: DEPRESSION
     Route: 048
  9. CALCIUM [Concomitant]
     Indication: BONE DISORDER
     Route: 048
  10. FOSAMAX [Concomitant]
     Indication: BONE DISORDER
     Route: 065
  11. FOLIC ACID [Concomitant]
     Indication: COLITIS ULCERATIVE
     Route: 065
  12. VITAMIN D [Concomitant]
     Indication: BONE DISORDER
     Dosage: LORAZEPAM NIGHT
     Route: 048

REACTIONS (5)
  - Cataract [Recovered/Resolved]
  - Visual impairment [Not Recovered/Not Resolved]
  - Weight decreased [Not Recovered/Not Resolved]
  - Gastrointestinal disorder [Not Recovered/Not Resolved]
  - Gastrointestinal pain [Not Recovered/Not Resolved]
